FAERS Safety Report 22380126 (Version 1)
Quarter: 2023Q2

REPORT INFORMATION
  Report Type: Spontaneous
  Country: US (occurrence: US)
  Receive Date: 20230529
  Receipt Date: 20230529
  Transmission Date: 20230721
  Serious: Yes (Hospitalization)
  Sender: FDA-Public Use
  Company Number: US-APIL-2315367US

PATIENT
  Sex: Female
  Weight: 152.83 kg

DRUGS (16)
  1. UBRELVY [Suspect]
     Active Substance: UBROGEPANT
     Indication: Product used for unknown indication
     Dosage: UNK
  2. KORLYM [Suspect]
     Active Substance: MIFEPRISTONE
     Indication: Cushing^s syndrome
     Dosage: 900 MG, QD
     Route: 048
     Dates: start: 20211209
  3. PRAZOSIN [Concomitant]
     Active Substance: PRAZOSIN
     Dosage: UNK
  4. DEPAKOTE [Concomitant]
     Active Substance: DIVALPROEX SODIUM
     Dosage: UNK
  5. ONDANSETRON [Concomitant]
     Active Substance: ONDANSETRON
     Dosage: UNK
  6. OZEMPIC [Concomitant]
     Active Substance: SEMAGLUTIDE
     Dosage: UNK
  7. PIOGLITAZONE [Concomitant]
     Active Substance: PIOGLITAZONE
     Dosage: UNK
  8. SEROQUEL [Concomitant]
     Active Substance: QUETIAPINE FUMARATE
     Dosage: UNK
  9. FLUOXETINE [Concomitant]
     Active Substance: FLUOXETINE HYDROCHLORIDE
     Dosage: UNK
  10. TOUJEO [Concomitant]
     Active Substance: INSULIN GLARGINE
     Dosage: UNK
  11. TOPIRAMATE [Concomitant]
     Active Substance: TOPIRAMATE
     Dosage: UNK
  12. BUSPIRONE [Concomitant]
     Active Substance: BUSPIRONE HYDROCHLORIDE
     Dosage: UNK
  13. FARXIGA [Concomitant]
     Active Substance: DAPAGLIFLOZIN PROPANEDIOL
     Dosage: UNK
  14. METFORMIN [Concomitant]
     Active Substance: METFORMIN HYDROCHLORIDE
     Dosage: UNK
  15. ATORVASTATIN [Concomitant]
     Active Substance: ATORVASTATIN
     Dosage: UNK
  16. TIRZEPATIDE [Concomitant]
     Active Substance: TIRZEPATIDE
     Dosage: UNK

REACTIONS (9)
  - Electrocardiogram abnormal [Unknown]
  - Blood potassium abnormal [Recovering/Resolving]
  - Tremor [Unknown]
  - Feeling cold [Unknown]
  - Abdominal pain upper [Unknown]
  - Diarrhoea [Unknown]
  - Asthenia [Unknown]
  - Hypophagia [Unknown]
  - Cushing^s syndrome [Unknown]

NARRATIVE: CASE EVENT DATE: 20230513
